FAERS Safety Report 8428797-4 (Version None)
Quarter: 2012Q2

REPORT INFORMATION
  Report Type: 
  Country: None (occurrence: None)
  Receive Date: 20120612
  Receipt Date: 20120607
  Transmission Date: 20120825
  Serious: Yes (Other)
  Sender: FDA-Public Use
  Company Number: FR-US-EMD SERONO, INC.-7138299

PATIENT
  Sex: Male
  Weight: 69 kg

DRUGS (10)
  1. CLADRIBINE [Suspect]
     Route: 048
     Dates: start: 20100310, end: 20100314
  2. CLADRIBINE [Suspect]
     Route: 048
     Dates: start: 20100117, end: 20100121
  3. ACETAMINOPHEN [Concomitant]
     Indication: HEADACHE
     Route: 048
     Dates: start: 20091216, end: 20091216
  4. ATORVASTATIN [Concomitant]
     Indication: HYPERCHOLESTEROLAEMIA
     Route: 048
     Dates: start: 20090919, end: 20100701
  5. ACETAMINOPHEN [Concomitant]
     Indication: INFLUENZA LIKE ILLNESS
     Route: 048
     Dates: start: 20091117
  6. ACETAMINOPHEN [Concomitant]
     Route: 048
     Dates: start: 20100604
  7. REBIF [Suspect]
     Indication: MULTIPLE SCLEROSIS
     Route: 058
     Dates: start: 20100604
  8. METHYLPREDNISOLONE [Concomitant]
     Indication: MULTIPLE SCLEROSIS RELAPSE
     Route: 040
     Dates: start: 20100702, end: 20100704
  9. CLADRIBINE [Suspect]
     Indication: MULTIPLE SCLEROSIS
     Route: 048
     Dates: start: 20091215, end: 20091219
  10. CLADRIBINE [Suspect]
     Route: 048
     Dates: start: 20100209, end: 20100213

REACTIONS (1)
  - SKIN PAPILLOMA [None]
